FAERS Safety Report 7483235-3 (Version None)
Quarter: 2011Q2

REPORT INFORMATION
  Report Type: 
  Country: None (occurrence: None)
  Receive Date: 20110516
  Receipt Date: 20110407
  Transmission Date: 20111010
  Serious: Yes (Death, Hospitalization)
  Sender: FDA-Public Use
  Company Number: PHHY2010NL68923

PATIENT
  Sex: Male

DRUGS (4)
  1. ZOMETA [Suspect]
     Indication: PROSTATE CANCER METASTATIC
     Dosage: 4 MG, UNK
     Dates: start: 20081113
  2. ZOMETA [Suspect]
     Dosage: 4 MG, UNK
     Dates: start: 20101014
  3. ZOMETA [Suspect]
     Dosage: 4 MG, UNK
     Dates: start: 20100914
  4. ZOMETA [Suspect]
     Dosage: 4 MG, UNK
     Dates: start: 20110407

REACTIONS (6)
  - MUSCULAR WEAKNESS [None]
  - ACTIVITIES OF DAILY LIVING IMPAIRED [None]
  - NEOPLASM MALIGNANT [None]
  - DISEASE PROGRESSION [None]
  - NEOPLASM [None]
  - TERMINAL STATE [None]
